FAERS Safety Report 24131729 (Version 3)
Quarter: 2024Q3

REPORT INFORMATION
  Report Type: Spontaneous
  Country: US (occurrence: US)
  Receive Date: 20240724
  Receipt Date: 20240807
  Transmission Date: 20241017
  Serious: Yes (Other)
  Sender: ASTELLAS
  Company Number: US-PFIZER INC-PV202400091884

PATIENT
  Age: 8 Decade
  Sex: Male

DRUGS (1)
  1. ENFORTUMAB VEDOTIN [Suspect]
     Active Substance: ENFORTUMAB VEDOTIN
     Indication: Transitional cell carcinoma
     Dosage: 1.25 MG/KG, CYCLIC ( D 1, D 8, D 15 (Q28D) INFUSION)
     Route: 065

REACTIONS (1)
  - Skin toxicity [Recovered/Resolved]
